FAERS Safety Report 5762034-4 (Version None)
Quarter: 2008Q2

REPORT INFORMATION
  Report Type: 
  Country: None (occurrence: None)
  Receive Date: 20080603
  Receipt Date: 20080519
  Transmission Date: 20081010
  Serious: Yes (Hospitalization)
  Sender: FDA-Public Use
  Company Number: DSA_31804_2008

PATIENT
  Age: 74 Year
  Sex: Male

DRUGS (10)
  1. ENALAPRIL MALEATE [Suspect]
     Indication: DRUG USE FOR UNKNOWN INDICATION
     Dosage: 10 MG QD ORAL
     Route: 048
     Dates: start: 20070108, end: 20071113
  2. CARBASPIRIN CALCIUM [Concomitant]
  3. CYCLOSPORINE [Concomitant]
  4. ESOMEPRAZOLE MAGNESIUM [Concomitant]
  5. EVEROLIMUS [Concomitant]
  6. FERROUS SULFATE TAB [Concomitant]
  7. FUROSEMIDE [Concomitant]
  8. LEUCOVORIN CALCIUM [Concomitant]
  9. PREDNISONE [Concomitant]
  10. TAMSULOSIN HCL [Concomitant]

REACTIONS (3)
  - HYPOXIA [None]
  - INTERSTITIAL LUNG DISEASE [None]
  - OEDEMA PERIPHERAL [None]
